FAERS Safety Report 18526503 (Version 1)
Quarter: 2020Q4

REPORT INFORMATION
  Report Type: Spontaneous
  Country: CN (occurrence: CN)
  Receive Date: 20201120
  Receipt Date: 20201120
  Transmission Date: 20210114
  Serious: Yes (Other)
  Sender: FDA-Public Use
  Company Number: CN-GYP-000054

PATIENT
  Age: 66 Year

DRUGS (4)
  1. PREDNISONE. [Suspect]
     Active Substance: PREDNISONE
     Indication: DIABETIC NEPHROPATHY
     Route: 065
  2. RITUXIMAB. [Suspect]
     Active Substance: RITUXIMAB
     Indication: DIABETIC NEPHROPATHY
     Dosage: 1 G, DAY 1 AND DAY 20
     Route: 065
  3. PREDNISONE. [Suspect]
     Active Substance: PREDNISONE
     Indication: DIABETIC NEPHROPATHY
     Dosage: 60 MG/D
     Route: 065
  4. CYCLOPHOSPHAMIDE. [Suspect]
     Active Substance: CYCLOPHOSPHAMIDE
     Indication: DIABETIC NEPHROPATHY
     Dosage: 100 MG/D
     Route: 065

REACTIONS (2)
  - Therapeutic product effect incomplete [Unknown]
  - Pneumonia [Unknown]
